FAERS Safety Report 5112497-2 (Version None)
Quarter: 2006Q3

REPORT INFORMATION
  Report Type: 
  Country: None (occurrence: None)
  Receive Date: 20060802
  Receipt Date: 20060403
  Transmission Date: 20061208
  Serious: No
  Sender: FDA-Public Use
  Company Number: 200613276US

PATIENT
  Age: 50 Year
  Sex: Male

DRUGS (1)
  1. KETEK [Suspect]
     Indication: SINUSITIS
     Dates: start: 20060101, end: 20060101

REACTIONS (3)
  - EYE PAIN [None]
  - VISION BLURRED [None]
  - VITREOUS FLOATERS [None]
